FAERS Safety Report 9972218 (Version 1)
Quarter: 2014Q1

REPORT INFORMATION
  Report Type: Spontaneous
  Country: IT (occurrence: None)
  Receive Date: 20140304
  Receipt Date: 20140304
  Transmission Date: 20141002
  Serious: Yes (Hospitalization)
  Sender: FDA-Public Use
  Company Number: 2201421

PATIENT
  Age: 73 Year
  Sex: Male
  Weight: 73 kg

DRUGS (5)
  1. CYTARABINE [Suspect]
     Indication: MANTLE CELL LYMPHOMA REFRACTORY
     Dosage: CYCLICAL (NOT OTHEWISE SPEICIFED)
     Route: 042
     Dates: start: 20130522, end: 20130726
  2. MABTHERA [Concomitant]
  3. LEVACT [Concomitant]
  4. LEVOXACIN [Concomitant]
  5. TALAVIR [Concomitant]

REACTIONS (1)
  - Renal failure acute [None]
